FAERS Safety Report 18097757 (Version 2)
Quarter: 2022Q1

REPORT INFORMATION
  Report Type: Spontaneous
  Country: CH (occurrence: CH)
  Receive Date: 20200731
  Receipt Date: 20220202
  Transmission Date: 20220423
  Serious: Yes (Other)
  Sender: FDA-Public Use
  Company Number: CH-SM-2020-12959

PATIENT
  Age: 74 Year
  Sex: Male

DRUGS (24)
  1. AMOXICILLIN\CLAVULANIC ACID [Suspect]
     Active Substance: AMOXICILLIN\CLAVULANIC ACID
     Dosage: IN TOTAL
     Route: 041
     Dates: start: 20200325, end: 20200325
  2. ACETAMINOPHEN [Suspect]
     Active Substance: ACETAMINOPHEN
     Dosage: 500 MG AT 4G/DAY FROM 25 MAR TO 17 APR ORAL OR INTRAVENOUS
     Route: 065
     Dates: start: 20200325, end: 20200417
  3. REYATAZ [Suspect]
     Active Substance: ATAZANAVIR SULFATE
     Dosage: 400 MG/DAY FROM 25 TO 31 MAR, EXCEPT 30 MAR: 800 MG/DAY
     Route: 048
     Dates: start: 20200325, end: 20200331
  4. PLAQUENIL [Suspect]
     Active Substance: HYDROXYCHLOROQUINE SULFATE
     Dosage: 400 MG: 2 DOSES 12 HOURS APART AROUND 25 MAR, THEN 200 MG/D FROM 26 MAR TO 28 MAR
     Route: 048
     Dates: start: 20200325, end: 20200328
  5. PIPERACILLIN SODIUM\TAZOBACTAM SODIUM [Suspect]
     Active Substance: PIPERACILLIN SODIUM\TAZOBACTAM SODIUM
     Route: 041
     Dates: start: 20200326, end: 20200401
  6. MIDAZOLAM [Concomitant]
     Active Substance: MIDAZOLAM
     Dates: start: 20200327, end: 20200417
  7. FENTANYL [Concomitant]
     Active Substance: FENTANYL
     Dates: start: 20200326, end: 20200417
  8. ROCURONIUM [Concomitant]
     Active Substance: ROCURONIUM BROMIDE
     Dosage: 30MG FROM 27 MAR TO 06 APR THEN FROM 11 TO 14 APR
  9. PROPOFOL [Concomitant]
     Active Substance: PROPOFOL
     Dates: start: 20200326, end: 20200410
  10. KETAMINE [Concomitant]
     Active Substance: KETAMINE
     Dosage: FROM 01 APR TO 05 APR THEN FROM 10 APR TO 17 APR
  11. CEFEPIME [Concomitant]
     Active Substance: CEFEPIME HYDROCHLORIDE
     Dates: start: 20200401, end: 20200405
  12. MEROPENEM [Concomitant]
     Active Substance: MEROPENEM
     Dates: start: 20200405, end: 20200409
  13. ENOXAPARIN [Concomitant]
     Active Substance: ENOXAPARIN
     Dates: start: 20200326
  14. SOTALOL [Concomitant]
     Active Substance: SOTALOL
     Dosage: 80 MG, SUSPENDED ON ADMISSION, RESUMED FROM 08 APR TO 17 APR
  15. METOPROLOL [Concomitant]
     Active Substance: METOPROLOL
     Dosage: 25-50 MG ON 28 MAR, 29 MAR, 5-6 APR
  16. HYDROCHLOROTHIAZIDE [Concomitant]
     Active Substance: HYDROCHLOROTHIAZIDE
     Dates: start: 20200405, end: 20200412
  17. FUROSEMIDE [Concomitant]
     Active Substance: FUROSEMIDE
     Dates: start: 20200402, end: 20200410
  18. ASPIRIN [Concomitant]
     Active Substance: ASPIRIN
     Dosage: 100 MG
     Dates: end: 20200331
  19. ESOMEPRAZOLE [Concomitant]
     Active Substance: ESOMEPRAZOLE
     Dosage: 40 MG/DAY
     Dates: start: 20200401, end: 20200417
  20. ACETYLCYSTEINE [Concomitant]
     Active Substance: ACETYLCYSTEINE
     Dates: start: 20200407, end: 20200410
  21. ACENOCOUMAROL [Concomitant]
     Active Substance: ACENOCOUMAROL
     Dosage: 2 MG
  22. ATORVASTATIN [Concomitant]
     Active Substance: ATORVASTATIN
     Dosage: 10 MG
  23. TAMSULOSIN [Concomitant]
     Active Substance: TAMSULOSIN
     Dosage: 0.3 MG
  24. VITAMIN D3 [Concomitant]
     Active Substance: CHOLECALCIFEROL

REACTIONS (2)
  - Hepatic enzyme increased [Recovering/Resolving]
  - Bundle branch block right [Unknown]

NARRATIVE: CASE EVENT DATE: 20200328
